FAERS Safety Report 4502971-1 (Version None)
Quarter: 2004Q4

REPORT INFORMATION
  Report Type: 
  Country: None (occurrence: None)
  Receive Date: 20041117
  Receipt Date: 20041109
  Transmission Date: 20050328
  Serious: Yes (Hospitalization)
  Sender: FDA-Public Use
  Company Number: DE-BRISTOL-MYERS SQUIBB COMPANY-12759023

PATIENT
  Age: 56 Year
  Sex: Male

DRUGS (3)
  1. CISPLATIN [Suspect]
     Indication: SMALL CELL LUNG CANCER STAGE UNSPECIFIED
     Dosage: C1: 11-AUG-2004
     Route: 042
     Dates: start: 20040922, end: 20040922
  2. ETOPOSIDE [Suspect]
     Indication: SMALL CELL LUNG CANCER STAGE UNSPECIFIED
     Dosage: C1: 11-AUG TO 13-AUG-2004
     Route: 042
     Dates: start: 20040922, end: 20040924
  3. METFORMIN HCL [Concomitant]

REACTIONS (1)
  - ACUTE CORONARY SYNDROME [None]
